FAERS Safety Report 5076398-0 (Version None)
Quarter: 2006Q3

REPORT INFORMATION
  Report Type: 
  Country: None (occurrence: None)
  Receive Date: 20060807
  Receipt Date: 20060725
  Transmission Date: 20061208
  Serious: Yes (Other)
  Sender: FDA-Public Use
  Company Number: 2006085677

PATIENT
  Age: 70 Year
  Sex: Male

DRUGS (6)
  1. NORVASC [Suspect]
     Indication: HYPERTENSION
     Dosage: 5 MG (5 MG, ONCE DAILY), ORAL
     Route: 048
     Dates: start: 20050101
  2. LOSARTAN POTASSIUM [Suspect]
     Indication: HYPERTENSION
  3. PLETAL [Concomitant]
  4. ANTI-DIABETICS (ANTI-DIABETICS) [Concomitant]
  5. BASEN (VOGLIBOSE) [Concomitant]
  6. ASPIRIN [Concomitant]

REACTIONS (2)
  - DIZZINESS [None]
  - HYPOTENSION [None]
